FAERS Safety Report 22030835 (Version 1)
Quarter: 2023Q1

REPORT INFORMATION
  Report Type: Spontaneous
  Country: ES (occurrence: ES)
  Receive Date: 20230223
  Receipt Date: 20230223
  Transmission Date: 20230417
  Serious: Yes (Hospitalization, Other)
  Sender: FDA-Public Use
  Company Number: None

PATIENT
  Age: 33 Year
  Sex: Female

DRUGS (2)
  1. LORAZEPAM [Suspect]
     Active Substance: LORAZEPAM
     Dosage: 100 MG, SINGLE
     Route: 048
     Dates: start: 20230207, end: 20230207
  2. TRAZODONE [Suspect]
     Active Substance: TRAZODONE HYDROCHLORIDE
     Dosage: 300 MG
     Route: 048
     Dates: start: 20230207, end: 20230207

REACTIONS (4)
  - Intentional overdose [Unknown]
  - Suicide attempt [Unknown]
  - Metabolic acidosis [Recovered/Resolved]
  - Somnolence [Recovered/Resolved]

NARRATIVE: CASE EVENT DATE: 20230207
